FAERS Safety Report 18793171 (Version 1)
Quarter: 2021Q1

REPORT INFORMATION
  Report Type: Spontaneous
  Country: US (occurrence: US)
  Receive Date: 20210127
  Receipt Date: 20210127
  Transmission Date: 20210419
  Serious: Yes (Hospitalization, Other)
  Sender: FDA-Public Use
  Company Number: US-SA-2021SA024945

PATIENT
  Age: 70 Year
  Sex: Male
  Weight: 75.5 kg

DRUGS (2)
  1. RENVELA [Suspect]
     Active Substance: SEVELAMER CARBONATE
     Dosage: UNK
     Dates: end: 20201230
  2. FLOTETUZUMAB. [Concomitant]
     Active Substance: FLOTETUZUMAB
     Indication: ACUTE MYELOID LEUKAEMIA
     Dosage: MULTI?STEP LEAD IN DOSE UP TO 500 NG/KG/DAY (PER PROTOCOL)
     Route: 042
     Dates: start: 20201106

REACTIONS (4)
  - Hyperglycaemia [Unknown]
  - Febrile neutropenia [Unknown]
  - Rash erythematous [Recovered/Resolved]
  - Condition aggravated [Recovered/Resolved]

NARRATIVE: CASE EVENT DATE: 202012
